FAERS Safety Report 4416078-5 (Version None)
Quarter: 2004Q3

REPORT INFORMATION
  Report Type: 
  Country: None (occurrence: None)
  Receive Date: 20040730
  Receipt Date: 20040719
  Transmission Date: 20050211
  Serious: Yes (Hospitalization)
  Sender: FDA-Public Use
  Company Number: 2004048991

PATIENT
  Age: 57 Year
  Sex: Female
  Weight: 147.419 kg

DRUGS (7)
  1. LIPITOR [Suspect]
     Indication: BLOOD CHOLESTEROL INCREASED
     Dosage: 10 MG (10 MG, 1 IN 1 D, ORAL)
     Route: 048
     Dates: start: 20040714
  2. INSULIN [Concomitant]
  3. GABAPENTIN [Concomitant]
  4. DIAZEPAM [Concomitant]
  5. OXYCOCET (OXYCODONE HYDROCHLORIDE, PARACETAMOL) [Concomitant]
  6. HYDROXYZINE EMBONATE (HYDROXYZINE EMBONATE) [Concomitant]
  7. LISINOPRIL (LISINIOPRIL) [Concomitant]

REACTIONS (5)
  - ASTHENIA [None]
  - BLOOD PRESSURE INCREASED [None]
  - EYELID DISORDER [None]
  - FATIGUE [None]
  - SOMNOLENCE [None]
